FAERS Safety Report 10694422 (Version 2)
Quarter: 2015Q1

REPORT INFORMATION
  Report Type: Spontaneous
  Country: US (occurrence: US)
  Receive Date: 20150107
  Receipt Date: 20150312
  Transmission Date: 20150721
  Serious: Yes (Other)
  Sender: FDA-Public Use
  Company Number: US-AMGEN-USASP2015000336

PATIENT
  Age: 57 Year
  Sex: Female
  Weight: 61.22 kg

DRUGS (7)
  1. ORENCIA [Suspect]
     Active Substance: ABATACEPT
     Indication: RHEUMATOID ARTHRITIS
     Dosage: UNK
     Route: 065
  2. HUMIRA [Suspect]
     Active Substance: ADALIMUMAB
     Indication: RHEUMATOID ARTHRITIS
     Dosage: 40 MG, Q2WK
     Route: 065
     Dates: start: 20130609, end: 20131109
  3. METHOTREXATE [Concomitant]
     Active Substance: METHOTREXATE
     Dosage: UNK
  4. LEUCOVORIN                         /00566701/ [Concomitant]
     Active Substance: LEUCOVORIN
     Dosage: UNK
  5. SARILUMAB [Concomitant]
     Dosage: UNK
  6. ENBREL [Suspect]
     Active Substance: ETANERCEPT
     Indication: RHEUMATOID ARTHRITIS
     Dosage: UNK
     Route: 065
  7. HUMIRA [Suspect]
     Active Substance: ADALIMUMAB
     Dosage: 40 MG, Q2WK
     Route: 065
     Dates: start: 20140409, end: 2014

REACTIONS (8)
  - Dry skin [Unknown]
  - Rash papular [Unknown]
  - Drug ineffective [Unknown]
  - Psoriasis [Unknown]
  - Dry eye [Unknown]
  - Rheumatoid arthritis [Unknown]
  - Exfoliative rash [Unknown]
  - Alopecia [Unknown]

NARRATIVE: CASE EVENT DATE: 2014
